FAERS Safety Report 6475421-6 (Version None)
Quarter: 2009Q4

REPORT INFORMATION
  Report Type: 
  Country: None (occurrence: None)
  Receive Date: 20091204
  Receipt Date: 20091124
  Transmission Date: 20100525
  Serious: Yes (Hospitalization, Other)
  Sender: FDA-Public Use
  Company Number: US-JNJCH-2009026220

PATIENT
  Sex: Female

DRUGS (4)
  1. BENADRYL [Suspect]
     Indication: INSOMNIA
     Dosage: TEXT:1 TABLET, ONCE A NIGHT BEFORE BED TIME
     Route: 048
  2. DICLOFENAC [Suspect]
     Indication: TENDONITIS
     Route: 048
     Dates: start: 20090409, end: 20090409
  3. VOLTAREN [Suspect]
     Indication: TENDONITIS
     Dosage: TEXT:UNSPECIFIED - ONCE DAILY
     Route: 061
  4. HYDROCODONE [Concomitant]
     Indication: ARTHRALGIA
     Dosage: TEXT:UNSPECIFIED
     Route: 065

REACTIONS (14)
  - ASTHENIA [None]
  - BURNING SENSATION [None]
  - DYSPNOEA [None]
  - ERYTHEMA [None]
  - FLUID RETENTION [None]
  - HEAD INJURY [None]
  - HYPERSENSITIVITY [None]
  - LOSS OF CONSCIOUSNESS [None]
  - LOSS OF EMPLOYMENT [None]
  - MYOCARDIAL INFARCTION [None]
  - OFF LABEL USE [None]
  - PHARYNGEAL OEDEMA [None]
  - PRURITUS [None]
  - WEIGHT INCREASED [None]
